FAERS Safety Report 7907089-3 (Version None)
Quarter: 2011Q4

REPORT INFORMATION
  Report Type: 
  Country: None (occurrence: None)
  Receive Date: 20111110
  Receipt Date: 20110321
  Transmission Date: 20120403
  Serious: No
  Sender: FDA-Public Use
  Company Number: US-ASTRAZENECA-2011SE16255

PATIENT
  Age: 73 Year
  Sex: Male

DRUGS (7)
  1. ZESTRIL [Suspect]
     Route: 048
     Dates: start: 20110304
  2. COLOSTAZOL [Concomitant]
     Indication: PERIPHERAL ARTERIAL OCCLUSIVE DISEASE
  3. FUROSEMIDE [Suspect]
     Indication: BLOOD PRESSURE
     Dates: end: 20110303
  4. METOPROLOL [Concomitant]
  5. JANTOVEN [Suspect]
     Indication: THROMBOSIS
     Dosage: 5 MG QD ON MONDAY, TUESDAY 7.5 MG WEDNESDAY
     Route: 048
     Dates: start: 20110105
  6. ZESTRIL [Suspect]
     Indication: BLOOD PRESSURE
     Route: 048
     Dates: end: 20110303
  7. VERAPAMIL [Suspect]
     Indication: BLOOD PRESSURE
     Dates: end: 20110303

REACTIONS (5)
  - DIZZINESS POSTURAL [None]
  - INCORRECT DOSE ADMINISTERED [None]
  - DRUG DOSE OMISSION [None]
  - DYSPNOEA [None]
  - HYPOTENSION [None]
